FAERS Safety Report 17823572 (Version 1)
Quarter: 2020Q2

REPORT INFORMATION
  Report Type: Spontaneous
  Country: US (occurrence: US)
  Receive Date: 20200525
  Receipt Date: 20200525
  Transmission Date: 20200714
  Serious: Yes (Disabling)
  Sender: FDA-Public Use
  Company Number: None

PATIENT
  Age: 37 Year
  Sex: Male
  Weight: 83.7 kg

DRUGS (1)
  1. DIAZEPAM. [Suspect]
     Active Substance: DIAZEPAM
     Indication: ANXIETY
     Dosage: ?          QUANTITY:1 TABLET(S);?
     Route: 048
     Dates: start: 20140501

REACTIONS (13)
  - Withdrawal syndrome [None]
  - Anxiety [None]
  - Product complaint [None]
  - Agitation [None]
  - Hyperhidrosis [None]
  - Hypertension [None]
  - Tremor [None]
  - Insomnia [None]
  - Drug ineffective [None]
  - Product measured potency issue [None]
  - Hyperreflexia [None]
  - Product taste abnormal [None]
  - Disturbance in attention [None]

NARRATIVE: CASE EVENT DATE: 20200508
